FAERS Safety Report 8104876-6 (Version None)
Quarter: 2012Q1

REPORT INFORMATION
  Report Type: 
  Country: None (occurrence: None)
  Receive Date: 20120201
  Receipt Date: 20120130
  Transmission Date: 20120608
  Serious: Yes (Hospitalization)
  Sender: FDA-Public Use
  Company Number: US-GLAXOSMITHKLINE-A0894153A

PATIENT
  Sex: Male
  Weight: 117.3 kg

DRUGS (13)
  1. RANITIDINE [Concomitant]
  2. GLIPIZIDE [Concomitant]
  3. LOTENSIN [Concomitant]
  4. ASPIRIN [Concomitant]
  5. CIALIS [Concomitant]
  6. LOVASTATIN [Concomitant]
  7. LOVASTATIN [Concomitant]
  8. NORVASC [Concomitant]
  9. NITROGLYCERIN [Concomitant]
  10. GLUCOPHAGE [Concomitant]
  11. PLAVIX [Concomitant]
  12. AVANDIA [Suspect]
     Indication: DIABETES MELLITUS
     Dosage: 4MG PER DAY
     Route: 048
     Dates: start: 20040628, end: 20070301
  13. METOPROLOL TARTRATE [Concomitant]

REACTIONS (2)
  - MYOCARDIAL INFARCTION [None]
  - CEREBROVASCULAR ACCIDENT [None]
